FAERS Safety Report 18368944 (Version 1)
Quarter: 2020Q4

REPORT INFORMATION
  Report Type: Spontaneous
  Country: US (occurrence: US)
  Receive Date: 20201011
  Receipt Date: 20201011
  Transmission Date: 20210114
  Serious: No
  Sender: FDA-Public Use
  Company Number: US-TEVA-2020-US-1836647

PATIENT
  Age: 82 Year
  Sex: Female

DRUGS (1)
  1. LIDOCAINE TEVA [Suspect]
     Active Substance: LIDOCAINE
     Indication: PAIN
     Route: 062
     Dates: start: 202009

REACTIONS (2)
  - Drug ineffective [Unknown]
  - Product adhesion issue [Unknown]

NARRATIVE: CASE EVENT DATE: 202009
